FAERS Safety Report 11009192 (Version 1)
Quarter: 2015Q2

REPORT INFORMATION
  Report Type: Spontaneous
  Country: US (occurrence: None)
  Receive Date: 20150409
  Receipt Date: 20150409
  Transmission Date: 20150821
  Serious: Yes (Other)
  Sender: FDA-Public Use
  Company Number: None

PATIENT
  Age: 62 Year
  Sex: Female
  Weight: 77.11 kg

DRUGS (4)
  1. OSTEO BI-FLEX [Concomitant]
     Active Substance: CHONDROITIN SULFATE A\GLUCOSAMINE
  2. FISH OIL [Concomitant]
     Active Substance: FISH OIL
  3. CLINDAMYCIN HCL 300 MG RANBAXY [Suspect]
     Active Substance: CLINDAMYCIN HYDROCHLORIDE
     Indication: TOOTH ABSCESS
     Route: 048
     Dates: start: 20150328, end: 20150407
  4. CENTRUM SILVER [Concomitant]
     Active Substance: VITAMINS

REACTIONS (2)
  - Urticaria [None]
  - Abdominal pain upper [None]

NARRATIVE: CASE EVENT DATE: 20150408
